FAERS Safety Report 14990202 (Version 2)
Quarter: 2018Q3

REPORT INFORMATION
  Report Type: Report from Study
  Country: None (occurrence: AR)
  Receive Date: 20180608
  Receipt Date: 20180703
  Transmission Date: 20181010
  Serious: Yes (Hospitalization, Other)
  Sender: FDA-Public Use
  Company Number: AR-ABBVIE-18S-007-2381414-00

PATIENT
  Age: 21 Year
  Sex: Male

DRUGS (3)
  1. IRON [Concomitant]
     Active Substance: IRON
  2. ZEMPLAR [Suspect]
     Active Substance: PARICALCITOL
     Indication: HYPERPARATHYROIDISM SECONDARY
     Route: 042
     Dates: start: 20160711
  3. IRON [Concomitant]
     Active Substance: IRON
     Indication: PRODUCT USED FOR UNKNOWN INDICATION
     Dosage: UNKNOWN FREQUENCY

REACTIONS (3)
  - Lymphadenopathy [Unknown]
  - Parathyroidectomy [Recovering/Resolving]
  - Blood parathyroid hormone increased [Unknown]

NARRATIVE: CASE EVENT DATE: 20180403
